FAERS Safety Report 6647532-3 (Version None)
Quarter: 2010Q1

REPORT INFORMATION
  Report Type: 
  Country: None (occurrence: None)
  Receive Date: 20100323
  Receipt Date: 20100323
  Transmission Date: 20100710
  Serious: Yes (Life-Threatening, Hospitalization)
  Sender: FDA-Public Use
  Company Number: None

PATIENT
  Age: 61 Year
  Sex: Male
  Weight: 99.06 kg

DRUGS (2)
  1. PEGINTERFERON [Suspect]
     Indication: HEPATITIS C
     Dosage: 180 MCG QWEEK SQ
     Route: 058
     Dates: start: 20091019, end: 20100203
  2. RIBAVIRIN [Suspect]
     Indication: HEPATITIS C
     Dosage: 1400 MG EVERY DAY PO
     Route: 048
     Dates: start: 20091019, end: 20100203

REACTIONS (3)
  - FEBRILE NEUTROPENIA [None]
  - PANCYTOPENIA [None]
  - PNEUMONIA [None]
